FAERS Safety Report 16228401 (Version 2)
Quarter: 2019Q2

REPORT INFORMATION
  Report Type: Spontaneous
  Country: US (occurrence: US)
  Receive Date: 20190423
  Receipt Date: 20190430
  Transmission Date: 20190711
  Serious: Yes (Hospitalization)
  Sender: FDA-Public Use
  Company Number: US-NAPPMUNDI-USA-2019-0146396

PATIENT
  Age: 84 Year
  Sex: Male

DRUGS (1)
  1. OXYCONTIN [Suspect]
     Active Substance: OXYCODONE HYDROCHLORIDE
     Indication: PAIN
     Dosage: 10 MG, Q12H
     Route: 048
     Dates: start: 20190306, end: 20190307

REACTIONS (6)
  - Decubitus ulcer [Unknown]
  - Drug ineffective [Unknown]
  - Pneumonia [Unknown]
  - Inappropriate schedule of product administration [Unknown]
  - Thrombosis [Recovered/Resolved]
  - Metastatic neoplasm [Unknown]

NARRATIVE: CASE EVENT DATE: 20190306
